FAERS Safety Report 4950290-1 (Version None)
Quarter: 2006Q1

REPORT INFORMATION
  Report Type: 
  Country: None (occurrence: None)
  Receive Date: 20060315
  Receipt Date: 20060302
  Transmission Date: 20060701
  Serious: Yes (Hospitalization)
  Sender: FDA-Public Use
  Company Number: 2006027817

PATIENT
  Age: 52 Year
  Sex: Female
  Weight: 44 kg

DRUGS (5)
  1. IRINOTECAN HCL [Suspect]
     Indication: RECTAL CANCER
     Dosage: 130 MG/BODY (INTERMITTENT), INTRAVENOUS
     Route: 042
     Dates: start: 20051125, end: 20060113
  2. FLUOROURACIL [Suspect]
     Indication: RECTAL CANCER
     Dosage: 2000 MG/BODY (1 IN 1 WK), INTRAVENOUS; SEE IMAGE
     Route: 042
     Dates: start: 20051125, end: 20051223
  3. FLUOROURACIL [Suspect]
     Indication: RECTAL CANCER
     Dosage: 2000 MG/BODY (1 IN 1 WK), INTRAVENOUS; SEE IMAGE
     Route: 042
     Dates: start: 20060113, end: 20060113
  4. CALCIUM LEVOFOLINATE (CALCIUM LEVOFOLINATE) [Suspect]
     Indication: RECTAL CANCER
     Dosage: 350 MG/BODY (1 IN 1 WK), INTRAVENOUS
     Route: 042
     Dates: start: 20051125, end: 20060113
  5. SOLU-CORTEF [Concomitant]

REACTIONS (9)
  - ANOREXIA [None]
  - DISCOMFORT [None]
  - ELECTROCARDIOGRAM T WAVE INVERSION [None]
  - FALL [None]
  - LOSS OF CONSCIOUSNESS [None]
  - MALAISE [None]
  - NAUSEA [None]
  - URINARY INCONTINENCE [None]
  - VOMITING [None]
